FAERS Safety Report 6720689-1 (Version None)
Quarter: 2010Q2

REPORT INFORMATION
  Report Type: 
  Country: None (occurrence: None)
  Receive Date: 20100511
  Receipt Date: 20100428
  Transmission Date: 20101027
  Serious: Yes (Hospitalization)
  Sender: FDA-Public Use
  Company Number: DE-MYLANLABS-2010S1007453

PATIENT
  Age: 78 Year
  Sex: Female
  Weight: 45 kg

DRUGS (4)
  1. METHOTREXATE [Suspect]
     Indication: RHEUMATOID ARTHRITIS
     Route: 042
     Dates: start: 19980101
  2. METHYLPREDNISOLONE 4MG TAB [Concomitant]
     Indication: RHEUMATOID ARTHRITIS
     Dosage: 4-10MG/DAY
     Route: 048
  3. CYCLOSPORINE [Concomitant]
     Indication: RHEUMATOID ARTHRITIS
     Dosage: 4-10MG/DAY
     Dates: start: 19980101, end: 19980101
  4. ENBREL [Concomitant]
     Indication: DRUG USE FOR UNKNOWN INDICATION
     Dates: start: 20090501

REACTIONS (1)
  - PANNICULITIS [None]
